FAERS Safety Report 7944992-2 (Version None)
Quarter: 2011Q4

REPORT INFORMATION
  Report Type: 
  Country: None (occurrence: None)
  Receive Date: 20111114
  Receipt Date: 20110715
  Transmission Date: 20120403
  Serious: No
  Sender: FDA-Public Use
  Company Number: 1000022209

PATIENT
  Age: 41 Year
  Sex: Female

DRUGS (1)
  1. SAVELLA [Suspect]
     Dosage: 100 MG (50 MG, 2 IN 1 D), 25 MG, ONCE
     Dates: start: 20100101, end: 20110623

REACTIONS (2)
  - ABORTION SPONTANEOUS [None]
  - MATERNAL EXPOSURE DURING PREGNANCY [None]
